FAERS Safety Report 22848578 (Version 8)
Quarter: 2023Q4

REPORT INFORMATION
  Report Type: Report from Study
  Country: RU (occurrence: RU)
  Receive Date: 20230822
  Receipt Date: 20231123
  Transmission Date: 20240110
  Serious: Yes (Other)
  Sender: FDA-Public Use
  Company Number: RU-002147023-NVSC2023RU179129

PATIENT
  Age: 8 Month
  Sex: Female
  Weight: 9.2 kg

DRUGS (7)
  1. ZOLGENSMA [Suspect]
     Active Substance: ONASEMNOGENE ABEPARVOVEC-XIOI
     Indication: Spinal muscular atrophy
     Dosage: 50 ML, (IN THE MORNING) ONCE/SINGLE
     Route: 041
     Dates: start: 20230504
  2. IPRATROPIUM BROMIDE [Concomitant]
     Active Substance: IPRATROPIUM BROMIDE\IPRATROPIUM BROMIDE ANHYDROUS
     Indication: Product used for unknown indication
     Dosage: 10 ML (DAILY INHALATION, (AEROSOL FOR INHALATION, 20 ?G/DOSE),  (IN THE MORNING, IN THE AFTERNOON, I
     Route: 065
     Dates: start: 20230505
  3. IPRATROPIUM BROMIDE [Concomitant]
     Active Substance: IPRATROPIUM BROMIDE\IPRATROPIUM BROMIDE ANHYDROUS
     Dosage: 5 DRP (DAILY INHALATIONS (IN THE MORNING, IN THE AFTERNOON, IN THE EVENING))
     Route: 065
     Dates: start: 20230505, end: 20230510
  4. PREDNISOLONE [Concomitant]
     Active Substance: PREDNISOLONE
     Indication: Product used for unknown indication
     Dosage: 10 MG SID (IN THE MORNING)
     Route: 048
     Dates: start: 20230503, end: 20230512
  5. CETIRIZINE [Concomitant]
     Active Substance: CETIRIZINE HYDROCHLORIDE
     Indication: Product used for unknown indication
     Dosage: 5 DRP SID (IN THE MORNING)
     Route: 048
     Dates: start: 20230426, end: 20230504
  6. MIRAMISTIN [Concomitant]
     Active Substance: MIRAMISTIN
     Indication: Product used for unknown indication
     Dosage: UNK ((SOLUTION FOR TOPICAL APPLICATION)) DAILY TOPICALLY 1 CM3 (ML), AFTER MEALS (IN THE MORNING, IN
     Route: 065
     Dates: start: 20230430, end: 20230502
  7. OXYMETAZOLINE [Concomitant]
     Active Substance: OXYMETAZOLINE
     Indication: Product used for unknown indication
     Dosage: 1 DRP, BID (DAILY INTRANASALLY (IN THE MORNING, IN THE EVENING))
     Route: 065
     Dates: start: 20230430, end: 20230502

REACTIONS (9)
  - Hepatomegaly [Unknown]
  - Dermatitis contact [Not Recovered/Not Resolved]
  - Renal disorder [Unknown]
  - Glomerulonephritis membranous [Unknown]
  - Gallbladder enlargement [Unknown]
  - Liver disorder [Unknown]
  - Kidney enlargement [Unknown]
  - Pancreatic disorder [Unknown]
  - Respiratory rate increased [Not Recovered/Not Resolved]
